FAERS Safety Report 13727126 (Version 1)
Quarter: 2017Q3

REPORT INFORMATION
  Report Type: Spontaneous
  Country: US (occurrence: US)
  Receive Date: 20170706
  Receipt Date: 20170706
  Transmission Date: 20171127
  Serious: Yes (Life-Threatening, Hospitalization, Other)
  Sender: FDA-Public Use
  Company Number: US-JAZZ-2017-US-008245

PATIENT
  Age: 61 Year
  Sex: Female

DRUGS (2)
  1. PRIALT [Suspect]
     Active Substance: ZICONOTIDE ACETATE
     Indication: PAIN
     Dosage: UNK ?G, QH
     Route: 037
  2. HYDROMORPHONE [Suspect]
     Active Substance: HYDROMORPHONE
     Indication: PAIN
     Dosage: UNK MG, QH
     Route: 037

REACTIONS (7)
  - Pneumonia aspiration [Unknown]
  - Agitation [Unknown]
  - Tachycardia [Unknown]
  - Weaning failure [Unknown]
  - Cardiac arrest [Recovered/Resolved]
  - Hypoxia [Unknown]
  - Delirium [Recovering/Resolving]
